FAERS Safety Report 7475567-X (Version None)
Quarter: 2011Q2

REPORT INFORMATION
  Report Type: 
  Country: None (occurrence: None)
  Receive Date: 20110512
  Receipt Date: 20110428
  Transmission Date: 20111010
  Serious: Yes (Hospitalization)
  Sender: FDA-Public Use
  Company Number: US-ENDO PHARMACEUTICALS INC.-OPER20110101

PATIENT
  Age: 88 Year
  Sex: Female

DRUGS (2)
  1. OPANA ER [Suspect]
     Indication: PAIN
     Dosage: 30 MG
     Route: 048
  2. TRAMADOL HYDROCHLORIDE [Concomitant]
     Indication: BREAKTHROUGH PAIN

REACTIONS (5)
  - URINARY TRACT INFECTION [None]
  - CARDIAC FAILURE CONGESTIVE [None]
  - DRUG INEFFECTIVE [None]
  - HYPOTENSION [None]
  - CONFUSIONAL STATE [None]
